FAERS Safety Report 22213471 (Version 1)
Quarter: 2023Q2

REPORT INFORMATION
  Report Type: Spontaneous
  Country: US (occurrence: None)
  Receive Date: 20230414
  Receipt Date: 20230414
  Transmission Date: 20230721
  Serious: No
  Sender: FDA-Public Use
  Company Number: None

PATIENT
  Age: 60 Year
  Sex: Female
  Weight: 220.9 kg

DRUGS (14)
  1. CAPECITABINE [Suspect]
     Active Substance: CAPECITABINE
     Indication: Breast cancer female
     Dosage: FREQUENCY : TWICE A DAY;?
     Route: 048
  2. ASPIRIN [Concomitant]
     Active Substance: ASPIRIN
  3. CALCIUM CARBONATE\CHOLECALCIFEROL [Concomitant]
     Active Substance: CALCIUM CARBONATE\CHOLECALCIFEROL
  4. RHAMNUS PURSHIANA BARK EXTRACT [Concomitant]
     Active Substance: RHAMNUS PURSHIANA BARK EXTRACT
  5. CINNAMON\HERBALS [Concomitant]
     Active Substance: CINNAMON\HERBALS
  6. CRANBERRY [Concomitant]
     Active Substance: CRANBERRY
  7. LEVETIRACETAM [Concomitant]
     Active Substance: LEVETIRACETAM
  8. LORAZEPAM [Concomitant]
     Active Substance: LORAZEPAM
  9. MELOXICAM [Concomitant]
     Active Substance: MELOXICAM
  10. METAXALONE [Concomitant]
     Active Substance: METAXALONE
  11. PREGABALIN [Concomitant]
     Active Substance: PREGABALIN
  12. TIZANIDINE [Concomitant]
     Active Substance: TIZANIDINE
  13. VITAMIN D3 [Concomitant]
     Active Substance: CHOLECALCIFEROL
  14. ZONISAMIDE [Concomitant]
     Active Substance: ZONISAMIDE

REACTIONS (2)
  - Palmar-plantar erythrodysaesthesia syndrome [None]
  - Therapy interrupted [None]
